FAERS Safety Report 24025688 (Version 2)
Quarter: 2024Q3

REPORT INFORMATION
  Report Type: Spontaneous
  Country: JP (occurrence: JP)
  Receive Date: 20240628
  Receipt Date: 20240917
  Transmission Date: 20241017
  Serious: Yes (Hospitalization, Other)
  Sender: TAKEDA
  Company Number: JP-TAKEDA-2024TJP009669

PATIENT
  Age: 71 Year
  Sex: Male

DRUGS (2)
  1. ALUNBRIG [Suspect]
     Active Substance: BRIGATINIB
     Indication: Squamous cell carcinoma of lung
     Dosage: 90 MILLIGRAM
     Route: 048
     Dates: start: 20220323, end: 20220329
  2. ALUNBRIG [Suspect]
     Active Substance: BRIGATINIB
     Dosage: 180 MILLIGRAM, QD
     Route: 048
     Dates: end: 20220406

REACTIONS (1)
  - Pulmonary toxicity [Recovered/Resolved]
